FAERS Safety Report 9166926 (Version 3)
Quarter: 2013Q1

REPORT INFORMATION
  Report Type: Spontaneous
  Country: JP (occurrence: JP)
  Receive Date: 20130318
  Receipt Date: 20130329
  Transmission Date: 20140127
  Serious: Yes (Hospitalization)
  Sender: FDA-Public Use
  Company Number: PHHY2013JP024662

PATIENT
  Age: 39 Year
  Sex: Male

DRUGS (3)
  1. CICLOSPORIN [Suspect]
     Indication: PROPHYLAXIS AGAINST GRAFT VERSUS HOST DISEASE
  2. CICLOSPORIN [Suspect]
     Indication: STEM CELL TRANSPLANT
  3. METHOTREXATE [Suspect]
     Indication: PROPHYLAXIS AGAINST GRAFT VERSUS HOST DISEASE

REACTIONS (4)
  - Thrombotic microangiopathy [Recovering/Resolving]
  - Acute graft versus host disease in skin [Unknown]
  - Blood lactate dehydrogenase increased [Unknown]
  - Drug ineffective [Unknown]
